FAERS Safety Report 18059644 (Version 2)
Quarter: 2021Q3

REPORT INFORMATION
  Report Type: Spontaneous
  Country: US (occurrence: US)
  Receive Date: 20200723
  Receipt Date: 20210726
  Transmission Date: 20211014
  Serious: No
  Sender: FDA-Public Use
  Company Number: US-ENDO PHARMACEUTICALS INC-2020-002206

PATIENT
  Age: 69 Year
  Sex: Male
  Weight: 81.63 kg

DRUGS (3)
  1. EDEX [Suspect]
     Active Substance: ALPROSTADIL
     Indication: ERECTILE DYSFUNCTION
     Dosage: 1 ML (20 MCG), 10?20 MINUTES BEFORE INTENDED ACTIVITY
     Route: 017
     Dates: start: 20200229, end: 20200229
  2. EDEX [Suspect]
     Active Substance: ALPROSTADIL
     Indication: ERECTILE DYSFUNCTION
     Dosage: 1 ML (20 MCG), 10?20 MINUTES BEFORE INTENDED ACTIVITY
     Route: 017
     Dates: start: 20200229, end: 20200229
  3. EDEX [Suspect]
     Active Substance: ALPROSTADIL
     Indication: ERECTILE DYSFUNCTION
     Dosage: 1 ML (20 MCG), 10?20 MINUTES BEFORE INTENDED ACTIVITY
     Route: 017
     Dates: start: 20200229, end: 20200229

REACTIONS (4)
  - Groin pain [Unknown]
  - Painful erection [Recovered/Resolved]
  - Penile pain [Recovered/Resolved]
  - Therapeutic product effect decreased [Unknown]

NARRATIVE: CASE EVENT DATE: 20200229
